FAERS Safety Report 8110675-1 (Version None)
Quarter: 2012Q1

REPORT INFORMATION
  Report Type: 
  Country: None (occurrence: None)
  Receive Date: 20120203
  Receipt Date: 20120126
  Transmission Date: 20120608
  Serious: Yes (Hospitalization, Other)
  Sender: FDA-Public Use
  Company Number: US-BAYER-2011-038059

PATIENT
  Age: 48 Year
  Sex: Female
  Weight: 62.585 kg

DRUGS (3)
  1. GLUCOSAMINE W/CHONDROITIN SULFATE [Concomitant]
     Indication: MEDICAL DIET
     Dosage: DAILY
     Route: 048
     Dates: start: 19990101
  2. YAZ [Suspect]
     Indication: CONTRACEPTION
     Dosage: UNK
     Dates: start: 20070904, end: 20090421
  3. GINKGO BILOBA [Concomitant]
     Dosage: DAILY
     Route: 048
     Dates: start: 20010101

REACTIONS (10)
  - GENERAL PHYSICAL HEALTH DETERIORATION [None]
  - OEDEMA PERIPHERAL [None]
  - VEIN DISORDER [None]
  - FEAR [None]
  - EMOTIONAL DISTRESS [None]
  - DEEP VEIN THROMBOSIS [None]
  - PULMONARY EMBOLISM [None]
  - PAIN IN EXTREMITY [None]
  - MUSCULOSKELETAL CHEST PAIN [None]
  - ANXIETY [None]
